FAERS Safety Report 12807079 (Version 1)
Quarter: 2016Q4

REPORT INFORMATION
  Report Type: Spontaneous
  Country: US (occurrence: US)
  Receive Date: 20161004
  Receipt Date: 20161004
  Transmission Date: 20170207
  Serious: No
  Sender: FDA-Public Use
  Company Number: US-JNJFOC-20160911748

PATIENT
  Sex: Female
  Weight: 65.77 kg

DRUGS (6)
  1. SYNTHROID [Concomitant]
     Active Substance: LEVOTHYROXINE SODIUM
     Indication: HYPERTHYROIDISM
     Route: 065
  2. NEURONTIN [Concomitant]
     Active Substance: GABAPENTIN
     Indication: NEUROPATHY PERIPHERAL
     Route: 065
  3. ZIOPTAN [Concomitant]
     Active Substance: TAFLUPROST
     Indication: EYE DISORDER
     Route: 065
  4. WOMENS ROGAINE UNSCENTED [Suspect]
     Active Substance: MINOXIDIL
     Indication: ALOPECIA
     Dosage: FULL CAPFUL, 1X DAILY, 3X A WEEK
     Route: 061
  5. WOMENS ROGAINE UNSCENTED [Suspect]
     Active Substance: MINOXIDIL
     Route: 061
  6. RESTASIS [Concomitant]
     Active Substance: CYCLOSPORINE
     Indication: DRY EYE
     Route: 065

REACTIONS (4)
  - Hair texture abnormal [Recovering/Resolving]
  - Overdose [Recovering/Resolving]
  - Inappropriate schedule of drug administration [Recovering/Resolving]
  - Expired product administered [Recovering/Resolving]
